FAERS Safety Report 4711106-1 (Version None)
Quarter: 2005Q3

REPORT INFORMATION
  Report Type: 
  Country: None (occurrence: None)
  Receive Date: 20050711
  Receipt Date: 20050706
  Transmission Date: 20060218
  Serious: Yes (Other)
  Sender: FDA-Public Use
  Company Number: 200516175GDDC

PATIENT
  Age: 30 Year
  Sex: Female

DRUGS (5)
  1. ARAVA [Suspect]
     Indication: RHEUMATOID ARTHRITIS
     Route: 048
     Dates: start: 19991026, end: 20040608
  2. SULFASALAZINE [Concomitant]
     Route: 048
     Dates: start: 20040711, end: 20040720
  3. PREDNISONE TAB [Concomitant]
     Dosage: DOSE: 10-7.5
     Route: 048
     Dates: start: 20020301
  4. FOLIC ACID [Concomitant]
     Route: 048
     Dates: start: 20040711
  5. CHOLESTYRAMINE [Concomitant]
     Dosage: DOSE: UNK

REACTIONS (2)
  - ABORTION SPONTANEOUS [None]
  - DRUG EXPOSURE DURING PREGNANCY [None]
